FAERS Safety Report 16868023 (Version 1)
Quarter: 2019Q3

REPORT INFORMATION
  Report Type: Spontaneous
  Country: US (occurrence: US)
  Receive Date: 20190930
  Receipt Date: 20190930
  Transmission Date: 20191005
  Serious: No
  Sender: FDA-Public Use
  Company Number: US-KARYOPHARM-2019KPT000478

PATIENT

DRUGS (1)
  1. XPOVIO [Suspect]
     Active Substance: SELINEXOR
     Indication: PLASMA CELL MYELOMA
     Dosage: 60 MG, WEEKLY
     Route: 048
     Dates: start: 20190823

REACTIONS (5)
  - Sinusitis [Unknown]
  - Weight decreased [Unknown]
  - Dysgeusia [Unknown]
  - Decreased appetite [Unknown]
  - Nausea [Unknown]

NARRATIVE: CASE EVENT DATE: 20190824
